FAERS Safety Report 5958529-0 (Version None)
Quarter: 2008Q4

REPORT INFORMATION
  Report Type: 
  Country: None (occurrence: None)
  Receive Date: 20081119
  Receipt Date: 20081117
  Transmission Date: 20090506
  Serious: Yes (Death, Other)
  Sender: FDA-Public Use
  Company Number: PHHY2008BR28516

PATIENT
  Age: 33 Year
  Sex: Female

DRUGS (1)
  1. LEPONEX [Suspect]
     Indication: PSYCHOTIC DISORDER
     Dosage: 250 MG OR 300 MG DAILY

REACTIONS (4)
  - ALCOHOL ABUSE [None]
  - ASPIRATION [None]
  - CONVULSION [None]
  - SOMNOLENCE [None]
